FAERS Safety Report 7024951-7 (Version None)
Quarter: 2010Q4

REPORT INFORMATION
  Report Type: 
  Country: None (occurrence: None)
  Receive Date: 20101001
  Receipt Date: 20100922
  Transmission Date: 20110411
  Serious: Yes (Other)
  Sender: FDA-Public Use
  Company Number: US-JNJFOC-20100907162

PATIENT
  Sex: Female
  Weight: 86.64 kg

DRUGS (2)
  1. REMICADE [Suspect]
     Indication: ARTHRITIS REACTIVE
     Route: 042
  2. REMICADE [Suspect]
     Indication: ANKYLOSING SPONDYLITIS
     Route: 042

REACTIONS (7)
  - FEELING ABNORMAL [None]
  - HEADACHE [None]
  - INCREASED UPPER AIRWAY SECRETION [None]
  - MALAISE [None]
  - OROPHARYNGEAL PAIN [None]
  - TONSILLECTOMY [None]
  - UPPER RESPIRATORY TRACT INFECTION [None]
